FAERS Safety Report 12745355 (Version 2)
Quarter: 2016Q4

REPORT INFORMATION
  Report Type: Report from Study
  Country: BR (occurrence: BR)
  Receive Date: 20160915
  Receipt Date: 20161014
  Transmission Date: 20170207
  Serious: Yes (Hospitalization)
  Sender: FDA-Public Use
  Company Number: PHHY2016BR125972

PATIENT
  Sex: Female
  Weight: 69 kg

DRUGS (1)
  1. SANDOSTATIN LAR DEPOT [Suspect]
     Active Substance: OCTREOTIDE ACETATE
     Indication: NEUROENDOCRINE TUMOUR
     Dosage: 30 MG, QMO
     Route: 065
     Dates: start: 2010

REACTIONS (4)
  - Pain [Unknown]
  - Vomiting [Unknown]
  - Muscle spasms [Unknown]
  - Weight decreased [Unknown]
